FAERS Safety Report 5159196-9 (Version None)
Quarter: 2006Q4

REPORT INFORMATION
  Report Type: 
  Country: None (occurrence: None)
  Receive Date: 20061120
  Receipt Date: 20061109
  Transmission Date: 20070319
  Serious: Yes (Life-Threatening, Hospitalization)
  Sender: FDA-Public Use
  Company Number: DE-2006-034618

PATIENT
  Age: 55 Year

DRUGS (1)
  1. BETAFERON (INTERFERON BETA - 1B)INJECTION, 250?G [Suspect]
     Indication: MULTIPLE SCLEROSIS
     Dosage: 8 MIU, EVERY 2D, SUBCUTANEOUS
     Route: 058
     Dates: end: 20051101

REACTIONS (3)
  - PANCREATIC CARCINOMA [None]
  - PULMONARY TUBERCULOSIS [None]
  - RENAL CELL CARCINOMA STAGE UNSPECIFIED [None]
